FAERS Safety Report 7074827-4 (Version None)
Quarter: 2010Q4

REPORT INFORMATION
  Report Type: 
  Country: None (occurrence: None)
  Receive Date: 20101029
  Receipt Date: 20101026
  Transmission Date: 20110411
  Serious: Yes (Life-Threatening, Hospitalization, Disabling, Other)
  Sender: FDA-Public Use
  Company Number: US-CELGENEUS-163-50794-10080474

PATIENT
  Sex: Female
  Weight: 55.388 kg

DRUGS (9)
  1. VIDAZA [Suspect]
     Route: 051
     Dates: start: 20080226, end: 20100101
  2. VIDAZA [Suspect]
     Route: 051
     Dates: start: 20100301, end: 20100521
  3. RED BLOOD CELLS [Concomitant]
     Route: 051
  4. PLATELETS [Concomitant]
     Route: 051
  5. EPOGEN [Concomitant]
     Route: 065
  6. GLUCOTROL [Concomitant]
     Route: 065
  7. GLIPIZIDE [Concomitant]
     Route: 065
  8. BENICAR [Concomitant]
     Route: 065
  9. BLOOD PRESSURE MEDICATION [Concomitant]
     Route: 065

REACTIONS (8)
  - ACUTE MYELOID LEUKAEMIA [None]
  - COUGH [None]
  - DIARRHOEA [None]
  - INTESTINAL OBSTRUCTION [None]
  - MYELODYSPLASTIC SYNDROME TRANSFORMATION [None]
  - PANCYTOPENIA [None]
  - PYREXIA [None]
  - WOUND INFECTION [None]
